FAERS Safety Report 8484984-0 (Version None)
Quarter: 2012Q3

REPORT INFORMATION
  Report Type: 
  Country: None (occurrence: None)
  Receive Date: 20120703
  Receipt Date: 20120625
  Transmission Date: 20120928
  Serious: Yes (Other)
  Sender: FDA-Public Use
  Company Number: GB-PFIZER INC-2012151733

PATIENT
  Age: 4 Week
  Sex: Male

DRUGS (6)
  1. LATANOPROST [Suspect]
     Dosage: UNK
     Route: 047
  2. PREDNISOLONE SODIUM PHOSPHATE [Suspect]
     Dosage: UNK, 4X/DAY
     Route: 047
  3. AZARGA [Suspect]
     Dosage: UNK, 2X/DAY
     Route: 047
  4. CYCLOPENTOLATE HCL [Suspect]
     Dosage: UNK, 3X/DAY
     Route: 047
  5. CHLORAMPHENICOL SODIUM SUCCINATE [Suspect]
     Dosage: UNK, 4X/DAY
     Route: 047
  6. DEXAMETHASONE [Suspect]
     Dosage: EVERY 2 HOURS
     Route: 047

REACTIONS (6)
  - PROCEDURAL HAEMORRHAGE [None]
  - XANTHOGRANULOMA [None]
  - HYPHAEMA [None]
  - INTRAOCULAR PRESSURE INCREASED [None]
  - VISUAL ACUITY REDUCED [None]
  - DRUG INEFFECTIVE [None]
